FAERS Safety Report 4371540-9 (Version None)
Quarter: 2004Q2

REPORT INFORMATION
  Report Type: 
  Country: None (occurrence: None)
  Receive Date: 20040607
  Receipt Date: 20040526
  Transmission Date: 20050107
  Serious: Yes (Hospitalization)
  Sender: FDA-Public Use
  Company Number: DE-JNJFOC-20040503077

PATIENT
  Sex: Female

DRUGS (7)
  1. REMICADE [Suspect]
     Indication: RHEUMATOID ARTHRITIS
     Route: 042
  2. PREDNISOLONE [Concomitant]
     Indication: RHEUMATOID ARTHRITIS
  3. ANALGESIC [Concomitant]
     Indication: PAIN
  4. BELOC ZOC [Concomitant]
  5. BELOC ZOC [Concomitant]
  6. APROVEL [Concomitant]
  7. ALLOPURINOL [Concomitant]

REACTIONS (1)
  - JOINT SWELLING [None]
